FAERS Safety Report 7916072-3 (Version None)
Quarter: 2011Q4

REPORT INFORMATION
  Report Type: 
  Country: None (occurrence: None)
  Receive Date: 20111115
  Receipt Date: 20100504
  Transmission Date: 20120403
  Serious: Yes (Other)
  Sender: FDA-Public Use
  Company Number: PHHY2010TW92430

PATIENT

DRUGS (2)
  1. PROZAC [Concomitant]
  2. GLEEVEC [Suspect]
     Indication: CHRONIC MYELOID LEUKAEMIA
     Dosage: 400 MG

REACTIONS (6)
  - MUSCULOSKELETAL STIFFNESS [None]
  - MOOD SWINGS [None]
  - NAUSEA [None]
  - DECREASED INTEREST [None]
  - ASTHENIA [None]
  - VOMITING [None]
